FAERS Safety Report 6183442-6 (Version None)
Quarter: 2009Q2

REPORT INFORMATION
  Report Type: 
  Country: None (occurrence: None)
  Receive Date: 20090506
  Receipt Date: 20090504
  Transmission Date: 20091009
  Serious: Yes (Death)
  Sender: FDA-Public Use
  Company Number: AE-509-159

PATIENT
  Age: 81 Year
  Sex: Female

DRUGS (1)
  1. LIDODERM [Suspect]
     Indication: POST HERPETIC NEURALGIA
     Dosage: 4 PATCHES A DAY OVER 10 YEARS

REACTIONS (3)
  - DRUG INEFFECTIVE [None]
  - MYOCARDIAL INFARCTION [None]
  - VENTRICULAR FAILURE [None]
